FAERS Safety Report 4427431-8 (Version None)
Quarter: 2004Q3

REPORT INFORMATION
  Report Type: 
  Country: None (occurrence: None)
  Receive Date: 20040812
  Receipt Date: 20040808
  Transmission Date: 20050211
  Serious: Yes (Hospitalization)
  Sender: FDA-Public Use
  Company Number: 430030P04USA

PATIENT
  Age: 52 Year
  Sex: Female
  Weight: 61 kg

DRUGS (8)
  1. NOVANTRONE [Suspect]
     Indication: PROGRESSIVE MULTIPLE SCLEROSIS
     Dosage: INTRAVENOUS
     Route: 042
     Dates: start: 20010827, end: 20021202
  2. REBIF [Concomitant]
  3. FAMRIDINE [Concomitant]
  4. SIMVASTATIN [Concomitant]
  5. ALENDRONATE SODIUM [Concomitant]
  6. CLONAZEPAM [Concomitant]
  7. TOLTERODINE TARTRATE [Concomitant]
  8. NITROFURANTOIN [Concomitant]

REACTIONS (11)
  - ACUTE MYELOID LEUKAEMIA [None]
  - ANAEMIA [None]
  - CLOSTRIDIUM COLITIS [None]
  - DRUG INEFFECTIVE [None]
  - EJECTION FRACTION ABNORMAL [None]
  - FEBRILE NEUTROPENIA [None]
  - NAUSEA [None]
  - NEUTROPHIL COUNT DECREASED [None]
  - THROMBOCYTOPENIA [None]
  - VOMITING [None]
  - WHITE BLOOD CELL COUNT DECREASED [None]
